FAERS Safety Report 5565316-4 (Version None)
Quarter: 2007Q4

REPORT INFORMATION
  Report Type: 
  Country: None (occurrence: None)
  Receive Date: 20071218
  Receipt Date: 20030317
  Transmission Date: 20080405
  Serious: Yes (Death, Life-Threatening)
  Sender: FDA-Public Use
  Company Number: JP-ROCHE-333836

PATIENT
  Age: 84 Year
  Sex: Female

DRUGS (8)
  1. ROCEPHIN [Suspect]
     Indication: INFECTION PROPHYLAXIS
     Dosage: ROUTE REPORTED AS DRIP.
     Route: 050
     Dates: start: 20030307, end: 20030313
  2. ZANTAC [Suspect]
     Route: 042
     Dates: start: 20030307, end: 20030317
  3. NITROGLYCERIN [Concomitant]
     Dosage: ROUTE REPORTED AS DRIP.
     Route: 050
     Dates: start: 20030307, end: 20030317
  4. PROMEDES [Concomitant]
     Route: 042
     Dates: start: 20030307, end: 20030317
  5. NICHOLIN [Concomitant]
     Dosage: ROUTE REPORTED AS DRIP.
     Route: 050
     Dates: start: 20030307, end: 20030317
  6. MULTIVITAMIN ADDITIVE [Concomitant]
     Indication: PARENTERAL NUTRITION
     Route: 051
     Dates: start: 20030307, end: 20030317
  7. MORPHINE HCL ELIXIR [Concomitant]
     Route: 030
     Dates: start: 20030307, end: 20030307
  8. LANIRAPID [Concomitant]
     Route: 048
     Dates: end: 20030301

REACTIONS (2)
  - HEPATITIS FULMINANT [None]
  - MULTI-ORGAN FAILURE [None]
